FAERS Safety Report 21447137 (Version 1)
Quarter: 2022Q4

REPORT INFORMATION
  Report Type: Report from Study
  Country: US (occurrence: US)
  Receive Date: 20221012
  Receipt Date: 20221012
  Transmission Date: 20230113
  Serious: Yes (Other)
  Sender: FDA-Public Use
  Company Number: US-ABBVIE-4151020

PATIENT

DRUGS (2)
  1. HUMIRA [Suspect]
     Active Substance: ADALIMUMAB
     Indication: Crohn^s disease
     Dosage: CITRATE FREE
     Route: 058
  2. Covid 19 vaccine Pfizer/BioNtech [Concomitant]
     Indication: COVID-19 immunisation
     Route: 030

REACTIONS (2)
  - Gastrointestinal haemorrhage [Unknown]
  - Spinal operation [Unknown]
